FAERS Safety Report 4757478-3 (Version None)
Quarter: 2005Q3

REPORT INFORMATION
  Report Type: 
  Country: None (occurrence: None)
  Receive Date: 20050831
  Receipt Date: 20050823
  Transmission Date: 20060218
  Serious: Yes (Hospitalization)
  Sender: FDA-Public Use
  Company Number: JP-MERCK-0508USA03375

PATIENT
  Age: 80 Year
  Sex: Male

DRUGS (10)
  1. PEPCID [Suspect]
     Route: 048
     Dates: start: 20050801
  2. EVIPROSTAT [Concomitant]
     Route: 048
  3. EBRANTIL [Concomitant]
     Route: 048
  4. ALLOPURINOL [Concomitant]
     Route: 048
  5. PREDONINE [Concomitant]
     Route: 048
  6. LASIX [Concomitant]
     Route: 048
  7. LIPITOR [Concomitant]
     Route: 048
  8. MICARDIS [Concomitant]
     Route: 048
  9. ADALAT [Concomitant]
     Route: 048
  10. COVERSYL [Concomitant]
     Route: 048

REACTIONS (4)
  - BODY TEMPERATURE INCREASED [None]
  - HAEMATOCHEZIA [None]
  - HAEMATURIA [None]
  - HAEMOPTYSIS [None]
